FAERS Safety Report 9519375 (Version 1)
Quarter: 2013Q1

REPORT INFORMATION
  Report Type: Spontaneous
  Country: US (occurrence: None)
  Receive Date: 20130305
  Receipt Date: 20130305
  Transmission Date: 20140127
  Serious: Yes (Other)
  Sender: FDA-Public Use
  Company Number: 163-21880-12110532

PATIENT
  Age: 52 Year
  Sex: Female
  Weight: 71.67 kg

DRUGS (6)
  1. REVLIMID [Suspect]
     Indication: PLASMA CELL MYELOMA
     Route: 048
     Dates: start: 20110920
  2. OXYCONTIN (OXYCODONE HYDROCHLORIDE) (TABLETS) [Concomitant]
  3. ACYCLOVIR (ACICLOVIR) (TABLETS) [Concomitant]
  4. DAPSONE (DAPSONE) (TABLETS) [Concomitant]
  5. DEXAMETHASONE (DEXAMETHASONE) [Concomitant]
  6. OMEPRAZOLE (OMEPRAZOLE) (TABLETS) [Concomitant]

REACTIONS (2)
  - Restless legs syndrome [None]
  - Neuropathy peripheral [None]
